FAERS Safety Report 6877649-X (Version None)
Quarter: 2010Q3

REPORT INFORMATION
  Report Type: 
  Country: None (occurrence: None)
  Receive Date: 20100727
  Receipt Date: 20100429
  Transmission Date: 20110219
  Serious: No
  Sender: FDA-Public Use
  Company Number: US-ABBOTT-10P-163-0642547-00

PATIENT
  Sex: Female
  Weight: 63.56 kg

DRUGS (4)
  1. SYNTHROID [Suspect]
     Indication: HYPOTHYROIDISM
     Route: 048
  2. SYNTHROID [Suspect]
     Route: 048
  3. SYNTHROID [Suspect]
     Route: 048
     Dates: end: 20100411
  4. SYNTHROID [Suspect]
     Route: 048
     Dates: start: 20100423, end: 20100425

REACTIONS (5)
  - BACK PAIN [None]
  - FATIGUE [None]
  - FEELING ABNORMAL [None]
  - LOCAL SWELLING [None]
  - TREMOR [None]
